FAERS Safety Report 22110091 (Version 2)
Quarter: 2023Q2

REPORT INFORMATION
  Report Type: Report from Study
  Country: US (occurrence: None)
  Receive Date: 20230317
  Receipt Date: 20230424
  Transmission Date: 20230721
  Serious: Yes (Other)
  Sender: FDA-Public Use
  Company Number: 2023A058465

PATIENT
  Age: 16344 Day
  Sex: Female
  Weight: 118.4 kg

DRUGS (1)
  1. TEZSPIRE [Suspect]
     Active Substance: TEZEPELUMAB-EKKO
     Indication: Asthma
     Route: 058
     Dates: start: 202209, end: 20230207

REACTIONS (7)
  - Oropharyngeal pain [Recovered/Resolved]
  - Pyrexia [Recovered/Resolved]
  - Diarrhoea [Recovered/Resolved]
  - Fatigue [Unknown]
  - Cough [Unknown]
  - Dyspnoea [Unknown]
  - Depression [Unknown]

NARRATIVE: CASE EVENT DATE: 20230207
